FAERS Safety Report 15205725 (Version 4)
Quarter: 2019Q3

REPORT INFORMATION
  Report Type: Spontaneous
  Country: US (occurrence: US)
  Receive Date: 20180727
  Receipt Date: 20190919
  Transmission Date: 20191004
  Serious: No
  Sender: FDA-Public Use
  Company Number: US-SHIRE-US201828697

PATIENT
  Sex: Female

DRUGS (1)
  1. XIIDRA [Suspect]
     Active Substance: LIFITEGRAST
     Indication: DRY EYE
     Dosage: 1 DROP IN EACH EYE , 2X/DAY:BID
     Route: 047
     Dates: end: 201906

REACTIONS (2)
  - Skin discolouration [Not Recovered/Not Resolved]
  - Skin swelling [Unknown]

NARRATIVE: CASE EVENT DATE: 2019
